FAERS Safety Report 24198261 (Version 1)
Quarter: 2024Q3

REPORT INFORMATION
  Report Type: Spontaneous
  Country: US (occurrence: US)
  Receive Date: 20240812
  Receipt Date: 20240812
  Transmission Date: 20241017
  Serious: No
  Sender: AUROBINDO
  Company Number: US-AUROBINDO-AUR-APL-2024-026639

PATIENT
  Sex: Male

DRUGS (2)
  1. TESTOSTERONE CYPIONATE [Suspect]
     Active Substance: TESTOSTERONE CYPIONATE
     Indication: Post-traumatic stress disorder
     Dosage: UNK (INJECTED IT TWICE)
     Route: 065
  2. TESTOSTERONE CYPIONATE [Suspect]
     Active Substance: TESTOSTERONE CYPIONATE
     Indication: Blood testosterone decreased

REACTIONS (5)
  - Insomnia [Unknown]
  - Nightmare [Unknown]
  - Tremor [Unknown]
  - Drug ineffective [Unknown]
  - Product physical consistency issue [Unknown]
